FAERS Safety Report 10682089 (Version 1)
Quarter: 2014Q4

REPORT INFORMATION
  Report Type: Spontaneous
  Country: US (occurrence: None)
  Receive Date: 20141229
  Receipt Date: 20141229
  Transmission Date: 20150529
  Serious: Yes (Disabling, Other)
  Sender: FDA-Public Use
  Company Number: None

PATIENT
  Age: 61 Year
  Sex: Female
  Weight: 72.58 kg

DRUGS (1)
  1. BUPROPION XL [Suspect]
     Active Substance: BUPROPION
     Indication: MAJOR DEPRESSION
     Dosage: 31 MG ONCE DAILY TAKEN BY MOUTH
     Route: 048
     Dates: start: 20141101, end: 20141227

REACTIONS (6)
  - Drug withdrawal syndrome [None]
  - Headache [None]
  - Product substitution issue [None]
  - Anxiety [None]
  - Product quality issue [None]
  - Depression [None]

NARRATIVE: CASE EVENT DATE: 20141104
